FAERS Safety Report 14759509 (Version 1)
Quarter: 2018Q2

REPORT INFORMATION
  Report Type: Spontaneous
  Country: US (occurrence: US)
  Receive Date: 20180413
  Receipt Date: 20180413
  Transmission Date: 20180711
  Serious: Yes (Hospitalization)
  Sender: FDA-Public Use
  Company Number: US-JNJFOC-20180402040

PATIENT
  Sex: Male
  Weight: 63 kg

DRUGS (16)
  1. SPIRONOLACTONE. [Concomitant]
     Active Substance: SPIRONOLACTONE
  2. ATORVASTATIN [Concomitant]
     Active Substance: ATORVASTATIN
  3. ALBUTEROL. [Concomitant]
     Active Substance: ALBUTEROL
  4. FUROSEMIDE. [Concomitant]
     Active Substance: FUROSEMIDE
  5. SIMETHICONE (DIMETHICONE) [Concomitant]
     Active Substance: DIMETHICONE
  6. REVLIMID [Concomitant]
     Active Substance: LENALIDOMIDE
     Dates: end: 20180201
  7. METOPROLOL XL SANDOZ [Concomitant]
     Active Substance: METOPROLOL SUCCINATE
  8. AMLODIPINE [Concomitant]
     Active Substance: AMLODIPINE BESYLATE
  9. LOSARTAN. [Concomitant]
     Active Substance: LOSARTAN
  10. ALLOPURINOL. [Concomitant]
     Active Substance: ALLOPURINOL
  11. ACYCLOVIR. [Concomitant]
     Active Substance: ACYCLOVIR
  12. GABAPENTIN. [Concomitant]
     Active Substance: GABAPENTIN
  13. ASPIRIN. [Concomitant]
     Active Substance: ASPIRIN
  14. DUONEB [Concomitant]
     Active Substance: ALBUTEROL SULFATE\IPRATROPIUM BROMIDE
  15. LOPERAMIDE [Concomitant]
     Active Substance: LOPERAMIDE
  16. DARZALEX [Suspect]
     Active Substance: DARATUMUMAB
     Indication: PLASMA CELL MYELOMA
     Dosage: EVERY OTHER WEEK GOING TO EVERY 28 DAYS
     Route: 042
     Dates: start: 201708, end: 201801

REACTIONS (4)
  - Pituitary tumour benign [Unknown]
  - Ejection fraction decreased [Unknown]
  - Coronary artery disease [Unknown]
  - Cardiac disorder [Unknown]
